FAERS Safety Report 20456874 (Version 1)
Quarter: 2022Q1

REPORT INFORMATION
  Report Type: Spontaneous
  Country: US (occurrence: US)
  Receive Date: 20220210
  Receipt Date: 20220210
  Transmission Date: 20220423
  Serious: No
  Sender: FDA-Public Use
  Company Number: US-PERRIGO-21US003662

PATIENT
  Age: 70 Year
  Sex: Female
  Weight: 47.166 kg

DRUGS (1)
  1. CETIRIZINE HYDROCHLORIDE [Suspect]
     Active Substance: CETIRIZINE HYDROCHLORIDE
     Indication: Seasonal allergy
     Dosage: 10 MG, QD
     Route: 048
     Dates: start: 20210301, end: 20210310

REACTIONS (2)
  - Headache [Not Recovered/Not Resolved]
  - Product administered to patient of inappropriate age [Recovered/Resolved]

NARRATIVE: CASE EVENT DATE: 20210301
